FAERS Safety Report 20804429 (Version 2)
Quarter: 2022Q2

REPORT INFORMATION
  Report Type: Spontaneous
  Country: US (occurrence: US)
  Receive Date: 20220509
  Receipt Date: 20220509
  Transmission Date: 20220721
  Serious: Yes (Other)
  Sender: FDA-Public Use
  Company Number: US-GLAXOSMITHKLINE-US2022AMR072474

PATIENT
  Age: 53 Year
  Sex: Female

DRUGS (2)
  1. TRELEGY ELLIPTA [Suspect]
     Active Substance: FLUTICASONE FUROATE\UMECLIDINIUM BROMIDE\VILANTEROL TRIFENATATE
     Indication: Product used for unknown indication
     Dosage: UNK, 200
  2. ADVAIR DISKUS [Suspect]
     Active Substance: FLUTICASONE PROPIONATE\SALMETEROL XINAFOATE
     Indication: Asthma
     Dosage: UNK

REACTIONS (10)
  - Choking [Unknown]
  - Asthma [Unknown]
  - Dysphonia [Unknown]
  - Multiple allergies [Unknown]
  - Aphonia [Recovering/Resolving]
  - Bronchitis [Unknown]
  - Candida infection [Unknown]
  - Dyspnoea [Unknown]
  - Treatment noncompliance [Unknown]
  - Drug ineffective [Unknown]
